FAERS Safety Report 8833885 (Version 1)
Quarter: 2012Q4

REPORT INFORMATION
  Report Type: Spontaneous
  Country: DK (occurrence: None)
  Receive Date: 20121005
  Receipt Date: 20121005
  Transmission Date: 20130627
  Serious: Yes (Hospitalization)
  Sender: FDA-Public Use
  Company Number: 2012MA011973

PATIENT
  Age: 80 Year
  Sex: Female

DRUGS (5)
  1. CETIRIZINE HYDROCHLORIDE [Suspect]
     Indication: HAY FEVER
     Route: 048
     Dates: start: 20120912, end: 20120916
  2. OMEPRAZOLE [Concomitant]
  3. RANITIDINE [Concomitant]
  4. ACETYLSALICYLIC ACID [Concomitant]
  5. ADCAL-D3 [Concomitant]

REACTIONS (2)
  - Fall [None]
  - Hyponatraemia [None]
